FAERS Safety Report 5817963-X (Version None)
Quarter: 2008Q3

REPORT INFORMATION
  Report Type: 
  Country: None (occurrence: None)
  Receive Date: 20080722
  Receipt Date: 20080702
  Transmission Date: 20090109
  Serious: No
  Sender: FDA-Public Use
  Company Number: US-BOEHRINGER INGELHEIM GMBH, GERMANY-2008-BP-10452BP

PATIENT
  Sex: Female

DRUGS (14)
  1. SPIRIVA [Suspect]
     Indication: CHRONIC OBSTRUCTIVE PULMONARY DISEASE
     Route: 055
     Dates: start: 20080501, end: 20080601
  2. TRIMETERENE HCT [Concomitant]
     Indication: HYPERTENSION
     Route: 048
  3. SYNTHROID [Concomitant]
     Indication: HYPOTHYROIDISM
     Route: 048
  4. POTASSIUM CHLORIDE [Concomitant]
     Indication: BLOOD POTASSIUM DECREASED
     Route: 048
     Dates: start: 20070301
  5. BENICAR [Concomitant]
     Indication: HYPERTENSION
     Route: 048
  6. CELEBREX [Concomitant]
     Indication: JOINT INJURY
     Route: 048
     Dates: start: 20080301
  7. SIMVASTATIN [Concomitant]
     Indication: BLOOD CHOLESTEROL INCREASED
     Route: 048
     Dates: start: 20070101
  8. LEXAPRO [Concomitant]
     Indication: ANXIETY
     Route: 048
  9. BONIVA [Concomitant]
     Indication: OSTEOPOROSIS
     Route: 048
     Dates: start: 20070301
  10. OXYGEN [Concomitant]
     Indication: CHRONIC OBSTRUCTIVE PULMONARY DISEASE
  11. ASCORBIC ACID [Concomitant]
     Indication: PROPHYLAXIS
     Route: 048
  12. CALCIUM/VIT D [Concomitant]
     Indication: OSTEOPOROSIS
     Route: 048
  13. MULTIVITAMIN [Concomitant]
     Indication: MACULAR DEGENERATION
     Route: 048
  14. BIBERRI [Concomitant]
     Indication: MACULAR DEGENERATION
     Route: 048

REACTIONS (4)
  - DRY MOUTH [None]
  - URINARY RETENTION [None]
  - VIRAL INFECTION [None]
  - VIRAL PHARYNGITIS [None]
